FAERS Safety Report 12086721 (Version 1)
Quarter: 2016Q1

REPORT INFORMATION
  Report Type: Spontaneous
  Country: US (occurrence: US)
  Receive Date: 20160217
  Receipt Date: 20160217
  Transmission Date: 20160526
  Serious: No
  Sender: FDA-Public Use
  Company Number: US-TAKEDA-2015TUS012373

PATIENT
  Age: 45 Year
  Sex: Female

DRUGS (1)
  1. PREVACID [Suspect]
     Active Substance: LANSOPRAZOLE
     Indication: DYSPEPSIA
     Dosage: 15 MG, QD
     Route: 048
     Dates: start: 20150801, end: 20150807

REACTIONS (2)
  - Diarrhoea [Recovered/Resolved]
  - Dyspepsia [Recovered/Resolved]

NARRATIVE: CASE EVENT DATE: 20150801
